FAERS Safety Report 5578479-1 (Version None)
Quarter: 2007Q4

REPORT INFORMATION
  Report Type: 
  Country: None (occurrence: None)
  Receive Date: 20071231
  Receipt Date: 20071220
  Transmission Date: 20080405
  Serious: Yes (Other)
  Sender: FDA-Public Use
  Company Number: US-PFIZER INC-2007107452

PATIENT
  Sex: Female

DRUGS (8)
  1. NEURONTIN [Suspect]
     Indication: NEURALGIA
  2. LYRICA [Interacting]
     Indication: NEURALGIA
     Dosage: TEXT:TDD:300MG
  3. ALL OTHER THERAPEUTIC PRODUCTS [Suspect]
  4. PROVIGIL [Interacting]
     Indication: FATIGUE
  5. PROVIGIL [Interacting]
     Indication: FIBROMYALGIA
  6. THYROID TAB [Suspect]
     Dosage: TEXT:75 MCG
  7. CYMBALTA [Suspect]
     Indication: DEPRESSION
     Dosage: TEXT:60 MG
  8. NAPROXEN [Concomitant]

REACTIONS (14)
  - BIOPSY LIVER [None]
  - BLOOD THYROID STIMULATING HORMONE INCREASED [None]
  - DEPRESSION [None]
  - DRUG INEFFECTIVE [None]
  - DRUG INTERACTION [None]
  - FATIGUE [None]
  - FIBROMYALGIA [None]
  - HEPATIC FIBROSIS [None]
  - HEPATITIS C [None]
  - SCAR [None]
  - THYROXINE INCREASED [None]
  - TRI-IODOTHYRONINE INCREASED [None]
  - WEIGHT DECREASED [None]
  - WEIGHT INCREASED [None]
